FAERS Safety Report 5937224-8 (Version None)
Quarter: 2008Q4

REPORT INFORMATION
  Report Type: 
  Country: None (occurrence: None)
  Receive Date: 20081031
  Receipt Date: 20081024
  Transmission Date: 20090506
  Serious: Yes (Hospitalization)
  Sender: FDA-Public Use
  Company Number: GB-NOVOPROD-279039

PATIENT
  Sex: Male
  Weight: 110.6 kg

DRUGS (8)
  1. INSULIN DETEMIR INNOLET [Suspect]
     Indication: INSULIN-REQUIRING TYPE 2 DIABETES MELLITUS
     Dosage: 24 IU, QD
     Route: 058
     Dates: start: 20080513
  2. ASPIRIN [Concomitant]
     Dosage: 150 MG, QD
     Route: 048
     Dates: start: 20000901, end: 20080904
  3. DOXAZOSIN MESYLATE [Concomitant]
     Dosage: 8 MG, QD
     Route: 048
     Dates: start: 20030501
  4. ATORVASTATIN [Concomitant]
     Dosage: 40 MG, QD
     Route: 048
     Dates: start: 20071201
  5. METFORMIN HCL [Concomitant]
     Dosage: 2550 MG, QD
     Route: 048
     Dates: start: 20020501
  6. LISINOPRIL [Concomitant]
     Dosage: 40 MG, QD
     Route: 048
     Dates: start: 20020201
  7. AMLODIPINE [Concomitant]
     Dosage: 10 MG, QD
     Route: 048
     Dates: start: 20020601
  8. OMEPRAZOLE [Concomitant]
     Dosage: 20 MG, QD
     Dates: start: 20080912

REACTIONS (2)
  - CELLULITIS [None]
  - CIRCULATORY COLLAPSE [None]
